FAERS Safety Report 11906546 (Version 13)
Quarter: 2020Q2

REPORT INFORMATION
  Report Type: Report from Study
  Country: CA (occurrence: CA)
  Receive Date: 20160111
  Receipt Date: 20200401
  Transmission Date: 20200713
  Serious: Yes (Hospitalization, Other)
  Sender: FDA-Public Use
  Company Number: PHHY2015CA099882

PATIENT
  Age: 53 Year
  Sex: Male

DRUGS (4)
  1. SANDOSTATIN LAR DEPOT [Suspect]
     Active Substance: OCTREOTIDE ACETATE
     Indication: ACROMEGALY
     Dosage: 30 MG, TIW (EVERY 3 WEEKS)
     Route: 030
     Dates: start: 20150812
  2. SANDOSTATIN LAR DEPOT [Suspect]
     Active Substance: OCTREOTIDE ACETATE
     Dosage: UNK
     Route: 030
     Dates: start: 20180911
  3. SANDOSTATIN LAR DEPOT [Suspect]
     Active Substance: OCTREOTIDE ACETATE
     Dosage: UNK
     Route: 030
     Dates: start: 20190410
  4. INSULIN [Concomitant]
     Active Substance: INSULIN NOS
     Indication: DIABETES MELLITUS
     Dosage: UNK
     Route: 065
     Dates: start: 201409

REACTIONS (27)
  - Back pain [Unknown]
  - Nasopharyngitis [Unknown]
  - Malaise [Unknown]
  - Hypoaesthesia [Unknown]
  - Limb discomfort [Unknown]
  - Pyrexia [Unknown]
  - Vertigo [Unknown]
  - Flatulence [Unknown]
  - Injection site bruising [Unknown]
  - Thrombosis [Unknown]
  - Exostosis [Unknown]
  - Swelling [Unknown]
  - Lethargy [Unknown]
  - Weight increased [Unknown]
  - Injection site discolouration [Unknown]
  - Gait inability [Unknown]
  - Contusion [Unknown]
  - Somnolence [Not Recovered/Not Resolved]
  - Movement disorder [Unknown]
  - Blood pressure systolic increased [Unknown]
  - Pain [Unknown]
  - Alopecia [Unknown]
  - Diarrhoea [Not Recovered/Not Resolved]
  - Pain in extremity [Unknown]
  - Blood glucose decreased [Unknown]
  - Inappropriate schedule of product administration [Unknown]
  - Fatigue [Unknown]

NARRATIVE: CASE EVENT DATE: 20150813
